FAERS Safety Report 12755621 (Version 1)
Quarter: 2016Q3

REPORT INFORMATION
  Report Type: Spontaneous
  Country: US (occurrence: US)
  Receive Date: 20160916
  Receipt Date: 20160916
  Transmission Date: 20161109
  Serious: Yes (Death)
  Sender: FDA-Public Use
  Company Number: US-IMPAX LABORATORIES, INC-2016-IPXL-00939

PATIENT
  Age: 13 Year
  Sex: Female

DRUGS (1)
  1. BUPROPION HYDROCHLORIDE SR [Suspect]
     Active Substance: BUPROPION HYDROCHLORIDE
     Indication: SUICIDE ATTEMPT
     Dosage: 21000 MG, UNK
     Route: 048

REACTIONS (10)
  - Completed suicide [Fatal]
  - Ventricular tachycardia [Fatal]
  - Electrocardiogram QT prolonged [Fatal]
  - Apnoea [Fatal]
  - Coma [Fatal]
  - Ventricular fibrillation [Fatal]
  - Papilloedema [Fatal]
  - Intentional overdose [Fatal]
  - Seizure [Fatal]
  - Cardiac arrest [Fatal]
